FAERS Safety Report 15622382 (Version 2)
Quarter: 2019Q1

REPORT INFORMATION
  Report Type: Spontaneous
  Country: US (occurrence: US)
  Receive Date: 20181115
  Receipt Date: 20190206
  Transmission Date: 20190417
  Serious: No
  Sender: FDA-Public Use
  Company Number: US-PFIZER INC-2018325358

PATIENT
  Age: 61 Year
  Sex: Female

DRUGS (1)
  1. IBRANCE [Suspect]
     Active Substance: PALBOCICLIB
     Dosage: 125 MG, CYCLIC (DAILY FOR 7 DAYS ON THEN 7 DAYS OFF, THEN REPEAT/Q DAY X 7 DAYS, 7 DAYS OFF)
     Route: 048
     Dates: start: 20170914

REACTIONS (2)
  - Liver function test increased [Unknown]
  - Hepatic enzyme abnormal [Unknown]
